FAERS Safety Report 23459347 (Version 1)
Quarter: 2024Q1

REPORT INFORMATION
  Report Type: Spontaneous
  Country: US (occurrence: US)
  Receive Date: 20240131
  Receipt Date: 20240131
  Transmission Date: 20240410
  Serious: No
  Sender: FDA-Public Use
  Company Number: US-AMGEN-USASP2024018158

PATIENT
  Sex: Male

DRUGS (2)
  1. OTEZLA [Suspect]
     Active Substance: APREMILAST
     Indication: Psoriasis
     Dosage: UNK
     Route: 065
  2. OTEZLA [Suspect]
     Active Substance: APREMILAST
     Dosage: 30 MILLIGRAM, BID
     Route: 048

REACTIONS (5)
  - Abdominal discomfort [Unknown]
  - Headache [Unknown]
  - Anxiety [Unknown]
  - Psoriasis [Unknown]
  - Product dose omission issue [Unknown]
